FAERS Safety Report 11608555 (Version 1)
Quarter: 2015Q4

REPORT INFORMATION
  Report Type: Report from Study
  Country: MX (occurrence: MX)
  Receive Date: 20151007
  Receipt Date: 20151007
  Transmission Date: 20160304
  Serious: Yes (Hospitalization)
  Sender: FDA-Public Use
  Company Number: MX-ABBVIE-15P-107-1472865-00

PATIENT
  Age: 75 Year
  Sex: Female

DRUGS (4)
  1. NORFENON [Concomitant]
     Indication: PRODUCT USED FOR UNKNOWN INDICATION
  2. VIEKIRA PAK [Suspect]
     Active Substance: DASABUVIR\OMBITASVIR\PARITAPREVIR\RITONAVIR
     Indication: HEPATITIS C
     Dosage: 3-0-1
     Route: 048
     Dates: start: 20150924
  3. ALDACTONE [Concomitant]
     Active Substance: SPIRONOLACTONE
     Indication: PRODUCT USED FOR UNKNOWN INDICATION
  4. INDERALICI [Concomitant]
     Indication: PRODUCT USED FOR UNKNOWN INDICATION

REACTIONS (2)
  - Malaise [Unknown]
  - Encephalopathy [Not Recovered/Not Resolved]

NARRATIVE: CASE EVENT DATE: 20150928
